FAERS Safety Report 8358442-8 (Version None)
Quarter: 2012Q2

REPORT INFORMATION
  Report Type: 
  Country: None (occurrence: None)
  Receive Date: 20120514
  Receipt Date: 20110907
  Transmission Date: 20120825
  Serious: No
  Sender: FDA-Public Use
  Company Number: US-TEVA-2011004705

PATIENT
  Sex: Male
  Weight: 87.168 kg

DRUGS (3)
  1. NUVIGIL [Suspect]
     Indication: SLEEP APNOEA SYNDROME
     Dosage: 150 MILLIGRAM;
     Route: 048
     Dates: start: 20100101
  2. ZOCOR [Concomitant]
     Dates: start: 20060101
  3. MULTI-VITAMIN [Concomitant]

REACTIONS (1)
  - NASAL CONGESTION [None]
